FAERS Safety Report 4521531-X (Version None)
Quarter: 2004Q4

REPORT INFORMATION
  Report Type: 
  Country: None (occurrence: None)
  Receive Date: 20041025
  Receipt Date: 20040713
  Transmission Date: 20050328
  Serious: Yes (Other)
  Sender: FDA-Public Use
  Company Number: HQWYE095714JUL04

PATIENT
  Sex: Female

DRUGS (1)
  1. PREMARIN [Suspect]
     Dates: start: 19630101, end: 19951101

REACTIONS (2)
  - BREAST CANCER [None]
  - CEREBROVASCULAR ACCIDENT [None]
